FAERS Safety Report 8921137 (Version 1)
Quarter: 2012Q4

REPORT INFORMATION
  Report Type: 
  Country: SE (occurrence: SE)
  Receive Date: 20121121
  Receipt Date: 20121121
  Transmission Date: 20130627
  Serious: Yes (Hospitalization)
  Sender: FDA-Public Use
  Company Number: SE-PFIZER INC-2012288069

PATIENT
  Age: 83 Year
  Sex: Male
  Weight: 98.4 kg

DRUGS (20)
  1. GENOTROPIN [Suspect]
     Indication: GROWTH HORMONE DEFICIENCY
     Dosage: UNK
     Route: 058
     Dates: start: 20000920
  2. CARDIZEM [Concomitant]
     Indication: ESSENTIAL HYPERTENSION
     Dosage: UNK
     Dates: start: 19930701
  3. LASIX RETARD [Concomitant]
     Indication: ESSENTIAL HYPERTENSION
     Dosage: UNK
     Dates: start: 19930701
  4. SELOKEN ZOC [Concomitant]
     Indication: ESSENTIAL HYPERTENSION
     Dosage: UNK
     Dates: start: 19930701
  5. MIDAMOR [Concomitant]
     Dosage: UNK
     Dates: start: 19930701
  6. LEVOTHYROXINE [Concomitant]
     Indication: TSH DECREASED
     Dosage: UNK
     Dates: start: 19930715
  7. LEVOTHYROXINE [Concomitant]
     Indication: PRIMARY HYPOTHYROIDISM
  8. CORTISONE ACETATE [Concomitant]
     Indication: ACTH DECREASED
     Dosage: UNK
     Dates: start: 19930715
  9. UNDESTOR [Concomitant]
     Indication: LUTEINIZING HORMONE DEFICIENCY
     Dosage: UNK
     Dates: start: 19940616
  10. UNDESTOR [Concomitant]
     Indication: FOLLICLE-STIMULATING HORMONE DEFICIENCY
  11. UNDESTOR [Concomitant]
     Indication: TESTICULAR HYPOGONADISM
  12. NITROMEX [Concomitant]
     Dosage: UNK
     Dates: start: 19970615
  13. INOLAXOL [Concomitant]
     Dosage: UNK
     Dates: start: 19971124
  14. MINIFOM [Concomitant]
     Dosage: UNK
     Dates: start: 19990201
  15. IMOVANE [Concomitant]
     Indication: SLEEP DISTURBANCE
     Dosage: UNK
     Dates: start: 19981115
  16. PROPAVAN [Concomitant]
     Indication: SLEEP DISTURBANCE
     Dosage: UNK
     Dates: start: 19991116
  17. ZOCORD [Concomitant]
     Dosage: UNK
     Dates: start: 20001016
  18. FURIX [Concomitant]
     Indication: ESSENTIAL HYPERTENSION
     Dosage: UNK
     Dates: start: 20001016
  19. TRIATEC [Concomitant]
     Dosage: UNK
     Dates: start: 20001016
  20. LANACRIST [Concomitant]
     Indication: CONDUCTION DISORDER
     Dosage: UNK
     Dates: start: 20021203

REACTIONS (1)
  - Cardiac failure [Unknown]
